FAERS Safety Report 7341904-X (Version None)
Quarter: 2011Q1

REPORT INFORMATION
  Report Type: 
  Country: None (occurrence: None)
  Receive Date: 20110309
  Receipt Date: 20110301
  Transmission Date: 20110831
  Serious: Yes (Life-Threatening, Hospitalization)
  Sender: FDA-Public Use
  Company Number: US-BAXTER-2011BH004920

PATIENT
  Sex: Male

DRUGS (2)
  1. BREVIBLOC [Suspect]
     Indication: HEART RATE INCREASED
     Route: 042
     Dates: start: 20110215, end: 20110216
  2. BREVIBLOC [Suspect]
     Indication: ATRIAL FIBRILLATION
     Route: 042
     Dates: start: 20110215, end: 20110216

REACTIONS (3)
  - HEART RATE INCREASED [None]
  - CARDIAC ARREST [None]
  - THERAPY CESSATION [None]
